FAERS Safety Report 4346382-0 (Version None)
Quarter: 2004Q2

REPORT INFORMATION
  Report Type: 
  Country: None (occurrence: None)
  Receive Date: 20040426
  Receipt Date: 20030528
  Transmission Date: 20050107
  Serious: No
  Sender: FDA-Public Use
  Company Number: US-GLAXOSMITHKLINE-A0409896A

PATIENT
  Age: 65 Year
  Sex: Female

DRUGS (2)
  1. ZOFRAN [Suspect]
     Indication: VOMITING
     Dosage: 8MG PER DAY
     Route: 048
  2. REGLAN [Concomitant]
     Route: 048

REACTIONS (1)
  - WEIGHT INCREASED [None]
